FAERS Safety Report 13937299 (Version 1)
Quarter: 2017Q3

REPORT INFORMATION
  Report Type: Spontaneous
  Country: US (occurrence: US)
  Receive Date: 20170905
  Receipt Date: 20170905
  Transmission Date: 20171127
  Serious: Yes (Hospitalization)
  Sender: FDA-Public Use
  Company Number: US-PFIZER INC-2017379712

PATIENT
  Age: 12 Year
  Sex: Male
  Weight: 41 kg

DRUGS (3)
  1. METFORMIN [Concomitant]
     Active Substance: METFORMIN HYDROCHLORIDE
     Indication: DRUG INTOLERANCE
     Dosage: 1500 MG, 1X/DAY
  2. GENOTROPIN MQ [Suspect]
     Active Substance: SOMATROPIN
     Indication: BODY HEIGHT BELOW NORMAL
     Dosage: 1 MG, 1X/DAY
     Dates: start: 2013, end: 20170823
  3. GENOTROPIN MQ [Suspect]
     Active Substance: SOMATROPIN
     Indication: MUSCULAR DYSTROPHY

REACTIONS (2)
  - Cerebrovascular accident [Unknown]
  - Product use in unapproved indication [Unknown]

NARRATIVE: CASE EVENT DATE: 2013
